FAERS Safety Report 9140424 (Version 4)
Quarter: 2014Q1

REPORT INFORMATION
  Report Type: Spontaneous
  Country: US (occurrence: US)
  Receive Date: 20130305
  Receipt Date: 20140113
  Transmission Date: 20141002
  Serious: Yes (Other)
  Sender: FDA-Public Use
  Company Number: US-009507513-1303USA001465

PATIENT
  Age: 64 Year
  Sex: Male
  Weight: 97.6 kg

DRUGS (23)
  1. REBETOL [Suspect]
     Indication: HEPATITIS C
     Dosage: PILLS
     Route: 048
     Dates: start: 20090102, end: 20091204
  2. REBETOL [Suspect]
     Dosage: 1200 MG DAILY
     Route: 048
     Dates: start: 20130204, end: 20130304
  3. REBETOL [Suspect]
     Dosage: 200 MG 1 IN AM 2 IN PM
     Route: 048
     Dates: start: 20130226, end: 20130304
  4. REBETOL [Suspect]
     Dosage: 200MG ALTERNATING WITH 400MG EVERY OTHER DAY;270;4
     Route: 048
     Dates: start: 20130405
  5. REBETOL [Suspect]
     Dosage: 1 OR 2 OR 2 AND 2, BID
     Route: 048
     Dates: start: 20130205, end: 20130906
  6. PEGASYS [Suspect]
     Indication: HEPATITIS C
     Dosage: UNK
     Dates: start: 20090102, end: 20091204
  7. PEGASYS [Suspect]
     Dosage: INJECT 0.5ML; QW;4;11, ON SYRINGE
     Route: 058
     Dates: start: 20130204, end: 20130906
  8. VICTRELIS [Suspect]
     Indication: HEPATITIS C
     Dosage: 4 DF, Q8H WITH LIGHT MEAL OR SNAK; 360;7
     Route: 048
     Dates: start: 20130304, end: 20130906
  9. COMPAZINE [Concomitant]
     Indication: NAUSEA
     Dosage: 1 Q6HOURS, PRN; 20;1
     Route: 048
     Dates: start: 20130418
  10. COMPAZINE [Concomitant]
     Indication: VOMITING
  11. ZETIA [Concomitant]
     Dosage: 1 DF, QD
  12. METOPROLOL SUCCINATE [Concomitant]
     Dosage: 1 DF, QD
  13. OMEPRAZOLE [Concomitant]
     Dosage: 1 DF, QD
  14. BENICAR HCT [Concomitant]
     Dosage: 1 DF, QD
  15. JANUVIA [Concomitant]
     Dosage: 1 DAILY
  16. ESTER-C [Concomitant]
     Dosage: UNK, QD
  17. MILK THISTLE [Concomitant]
     Dosage: UNK, QD
  18. NAPROXEN [Concomitant]
     Indication: ARTHRITIS
     Dosage: 1, PRN
     Route: 048
  19. ULORIC [Concomitant]
     Dosage: 1, QD
  20. COLCRYS [Concomitant]
     Dosage: 1, QD
  21. MAGNESIUM (UNSPECIFIED) [Concomitant]
     Dosage: 1, QD
  22. BIOTIN [Concomitant]
     Dosage: UNK, QD
  23. SYNTHROID [Concomitant]
     Dosage: 1, QD

REACTIONS (14)
  - Anaemia [Unknown]
  - Drug ineffective [Unknown]
  - Leukopenia [Unknown]
  - White blood cell count decreased [Unknown]
  - Anaemia [Unknown]
  - Haemoglobin decreased [Unknown]
  - Fatigue [Unknown]
  - Nausea [Unknown]
  - Headache [Unknown]
  - Dysgeusia [Unknown]
  - Anaemia [Unknown]
  - White blood cell count decreased [Unknown]
  - Anaemia [Recovering/Resolving]
  - Drug ineffective [Unknown]
